FAERS Safety Report 23037165 (Version 1)
Quarter: 2023Q4

REPORT INFORMATION
  Report Type: Spontaneous
  Country: DK (occurrence: DK)
  Receive Date: 20231006
  Receipt Date: 20231006
  Transmission Date: 20240109
  Serious: Yes (Other)
  Sender: FDA-Public Use
  Company Number: DK-ALKEM LABORATORIES LIMITED-DK-ALKEM-2023-10031

PATIENT
  Age: 36 Year
  Sex: Male

DRUGS (8)
  1. IBUPROFEN [Suspect]
     Active Substance: IBUPROFEN
     Indication: Product used for unknown indication
     Dosage: UNK, TABLET (POLYETHYLENE GLYCOL (PEG) 6000)
     Route: 065
  2. BALANCID NOVUM [Concomitant]
     Indication: Product used for unknown indication
     Dosage: UNK, REFLUX TABLET, POLYETHYLENE GLYCOL (PEG 6000)
     Route: 065
  3. MUCOANGIN [Concomitant]
     Indication: Product used for unknown indication
     Dosage: UNK, THROAT LOZENGE (POLYETHYLENE GLYCOL (PEG) 6000)
     Route: 065
  4. SENSODYNE [Concomitant]
     Active Substance: POTASSIUM NITRATE\SODIUM FLUORIDE
     Indication: Dental cleaning
     Dosage: UNK, POLYETHYLENE GLYCOL (PEG) 6000)
     Route: 065
  5. Vepicombin [Concomitant]
     Indication: Product used for unknown indication
     Dosage: UNK, POLYETHYLENE GLYCOL (PEG 6000)
     Route: 065
  6. Vepicombin [Concomitant]
     Dosage: UNK, 1 MIE, DURING DRUG PROVOCATION, POLYETHYLENE GLYCOL (PEG 6000)
     Route: 065
  7. Xerodent [Concomitant]
     Indication: Product used for unknown indication
     Dosage: UNK, POLYETHYLENE GLYCOL (PEG 6000)
     Route: 048
  8. Xerodent [Concomitant]
     Dosage: UNK
     Route: 048

REACTIONS (1)
  - Anaphylactic reaction [Unknown]
